FAERS Safety Report 21503599 (Version 1)
Quarter: 2022Q4

REPORT INFORMATION
  Report Type: Report from Study
  Country: US (occurrence: US)
  Receive Date: 20221025
  Receipt Date: 20221025
  Transmission Date: 20230112
  Serious: No
  Sender: FDA-Public Use
  Company Number: US-ABBVIE-4146659

PATIENT
  Sex: Female

DRUGS (2)
  1. RINVOQ [Suspect]
     Active Substance: UPADACITINIB
     Indication: Rheumatoid arthritis
     Dosage: 15 MG PO
     Route: 048
     Dates: start: 202206
  2. ALBUTEROL [Concomitant]
     Active Substance: ALBUTEROL
     Indication: Product used for unknown indication
     Dosage: INHALER
     Route: 065

REACTIONS (7)
  - Night sweats [Unknown]
  - Depression [Unknown]
  - Abdominal discomfort [Unknown]
  - Dyspnoea [Unknown]
  - Mood swings [Unknown]
  - Abdominal distension [Unknown]
  - Asthma [Unknown]
